FAERS Safety Report 22092731 (Version 1)
Quarter: 2023Q1

REPORT INFORMATION
  Report Type: Other
  Country: DE (occurrence: None)
  Receive Date: 20230314
  Receipt Date: 20230314
  Transmission Date: 20230418
  Serious: Yes (Death, Hospitalization)
  Sender: FDA-Public Use
  Company Number: DE-DEXPHARM-20230621

PATIENT
  Age: 51 Year
  Sex: Female

DRUGS (4)
  1. DICLOFENAC [Suspect]
     Active Substance: DICLOFENAC
     Indication: Pain
     Dosage: DICLOFENAC SUPPOSITORY OF 100 MG 6 TIMES DAILY PER RECTAL DURING 5 DAYS
     Route: 050
  2. CEPHALEXIN [Concomitant]
     Active Substance: CEPHALEXIN
     Dosage: TABLETS OF CEPHALEXIN 500 MG/FOUR TIMES DAILY
  3. HEPARIN [Concomitant]
     Active Substance: HEPARIN SODIUM
     Dosage: AMPOULES OF HEPARIN 5000 IU/TWICE DAILY
  4. MUCILLIUM [Concomitant]
     Dosage: SACHETS OF MUCILLIUM AS 1 SACHET DAILY

REACTIONS (12)
  - Cardiac arrest [Fatal]
  - Nausea [Unknown]
  - Vomiting [Unknown]
  - Constipation [Unknown]
  - Glossitis [Unknown]
  - Metabolic acidosis [Unknown]
  - Delirium [Unknown]
  - Depressed level of consciousness [Unknown]
  - Acute kidney injury [Unknown]
  - Intentional product misuse [Unknown]
  - Overdose [Unknown]
  - Rash [Unknown]
